FAERS Safety Report 15239650 (Version 1)
Quarter: 2018Q3

REPORT INFORMATION
  Report Type: Report from Study
  Country: AE (occurrence: AE)
  Receive Date: 20180803
  Receipt Date: 20180803
  Transmission Date: 20181010
  Serious: Yes (Disabling)
  Sender: FDA-Public Use
  Company Number: PHHY2017AE105144

PATIENT
  Age: 32 Year
  Sex: Female

DRUGS (2)
  1. GILENYA [Suspect]
     Active Substance: FINGOLIMOD HYDROCHLORIDE
     Indication: MULTIPLE SCLEROSIS
     Dosage: 0.5 MG, QD
     Route: 048
     Dates: start: 2014, end: 201802
  2. GILENYA [Suspect]
     Active Substance: FINGOLIMOD HYDROCHLORIDE
     Dosage: 0.5 MG, QD
     Route: 048
     Dates: start: 20180301

REACTIONS (17)
  - Tremor [Not Recovered/Not Resolved]
  - Hypoaesthesia [Recovering/Resolving]
  - Feeding disorder [Unknown]
  - Pain in jaw [Recovering/Resolving]
  - Renal disorder [Not Recovered/Not Resolved]
  - Facial pain [Recovering/Resolving]
  - Fatigue [Not Recovered/Not Resolved]
  - Stress [Not Recovered/Not Resolved]
  - Amnesia [Not Recovered/Not Resolved]
  - Hepatic enzyme increased [Unknown]
  - Dysarthria [Recovering/Resolving]
  - Balance disorder [Not Recovered/Not Resolved]
  - Coordination abnormal [Recovering/Resolving]
  - Headache [Not Recovered/Not Resolved]
  - Speech disorder [Unknown]
  - Joint stiffness [Unknown]
  - Pain [Recovering/Resolving]

NARRATIVE: CASE EVENT DATE: 2014
